FAERS Safety Report 16614345 (Version 1)
Quarter: 2019Q3

REPORT INFORMATION
  Report Type: Spontaneous
  Country: AR (occurrence: AR)
  Receive Date: 20190723
  Receipt Date: 20190723
  Transmission Date: 20191004
  Serious: Yes (Other)
  Sender: FDA-Public Use
  Company Number: AR-MYLANLABS-2017M1075646

PATIENT
  Age: 39 Year
  Sex: Male

DRUGS (2)
  1. LAPENAX [Suspect]
     Active Substance: CLOZAPINE
     Indication: SCHIZOPHRENIA
     Dosage: UNK
     Dates: start: 20080906
  2. TOPIRAMATE. [Concomitant]
     Active Substance: TOPIRAMATE
     Indication: PRODUCT USED FOR UNKNOWN INDICATION

REACTIONS (3)
  - Neutrophilia [Recovered/Resolved]
  - Neutropenia [Unknown]
  - Leukocytosis [Recovered/Resolved]

NARRATIVE: CASE EVENT DATE: 20171113
